FAERS Safety Report 6382485-7 (Version None)
Quarter: 2009Q3

REPORT INFORMATION
  Report Type: 
  Country: None (occurrence: None)
  Receive Date: 20090924
  Receipt Date: 20080820
  Transmission Date: 20100115
  Serious: Yes (Hospitalization)
  Sender: FDA-Public Use
  Company Number: WAES 0808USA03958

PATIENT

DRUGS (1)
  1. VYTORIN [Suspect]
     Dosage: 10MG-40 MG/PO
     Route: 048

REACTIONS (1)
  - MYALGIA [None]
